FAERS Safety Report 8381904-4 (Version None)
Quarter: 2012Q2

REPORT INFORMATION
  Report Type: 
  Country: None (occurrence: None)
  Receive Date: 20120522
  Receipt Date: 20120522
  Transmission Date: 20120825
  Serious: No
  Sender: FDA-Public Use
  Company Number: None

PATIENT
  Age: 43 Year
  Sex: Male
  Weight: 147 kg

DRUGS (1)
  1. CLEOCIN PHOSPHATE [Suspect]
     Dosage: 900MG Q8H IV
     Route: 042
     Dates: start: 20120508, end: 20120517

REACTIONS (1)
  - RASH [None]
